FAERS Safety Report 5721663-4 (Version None)
Quarter: 2008Q2

REPORT INFORMATION
  Report Type: 
  Country: None (occurrence: None)
  Receive Date: 20080429
  Receipt Date: 20080421
  Transmission Date: 20081010
  Serious: Yes (Hospitalization)
  Sender: FDA-Public Use
  Company Number: PHHY2008GB06395

PATIENT

DRUGS (1)
  1. NEORAL [Suspect]
     Indication: TRANSPLANT
     Dosage: 100 MG MORNING + 75 MG NIGHT

REACTIONS (1)
  - PYELOPLASTY [None]
